FAERS Safety Report 5527074-9 (Version None)
Quarter: 2007Q4

REPORT INFORMATION
  Report Type: 
  Country: None (occurrence: None)
  Receive Date: 20071127
  Receipt Date: 20071119
  Transmission Date: 20080405
  Serious: Yes (Disabling)
  Sender: FDA-Public Use
  Company Number: JP-MERCK-0711USA01912

PATIENT
  Age: 73 Year
  Sex: Female
  Weight: 57 kg

DRUGS (6)
  1. COZAAR [Suspect]
     Indication: HYPERTENSION
     Route: 048
     Dates: start: 20060308, end: 20070921
  2. TRICHLON [Concomitant]
     Indication: HYPERTENSION
     Route: 048
     Dates: start: 20000801, end: 20070921
  3. VITAMIN E NICOTINATE [Concomitant]
     Indication: HYPERTENSION
     Route: 048
     Dates: start: 20000801
  4. VITAMIN E NICOTINATE [Concomitant]
     Indication: PERIPHERAL VASCULAR DISORDER
     Route: 048
     Dates: start: 20000801
  5. DIAZEPAM [Concomitant]
     Indication: HYPERTENSION
     Route: 048
     Dates: start: 20000801
  6. DIAZEPAM [Concomitant]
     Indication: ANXIETY
     Route: 048
     Dates: start: 20000801

REACTIONS (3)
  - COUGH [None]
  - PHARYNGOLARYNGEAL DISCOMFORT [None]
  - WHEEZING [None]
